FAERS Safety Report 8326394-2 (Version None)
Quarter: 2012Q2

REPORT INFORMATION
  Report Type: 
  Country: None (occurrence: None)
  Receive Date: 20120501
  Receipt Date: 20090707
  Transmission Date: 20120825
  Serious: No
  Sender: FDA-Public Use
  Company Number: US-TEVA-2009008240

PATIENT
  Sex: Male
  Weight: 105.33 kg

DRUGS (7)
  1. SIMVASTATIN [Concomitant]
     Indication: BLOOD CHOLESTEROL INCREASED
     Dates: start: 20080101
  2. NUVIGIL [Suspect]
     Indication: SLEEP APNOEA SYNDROME
     Route: 048
     Dates: start: 20090701
  3. RESTASIS [Concomitant]
     Indication: DRY EYE
     Dates: start: 20090401
  4. ACYCLOVIR [Concomitant]
     Indication: GENITAL HERPES
     Dates: start: 20080101
  5. LOTEMAX [Concomitant]
     Indication: DRY EYE
     Dates: start: 20090401
  6. CLONAZEPAM [Concomitant]
     Indication: PARAESTHESIA
     Dates: start: 20070101
  7. CYCLOBENZAPRINE [Concomitant]
     Indication: OCCIPITAL NEURALGIA

REACTIONS (3)
  - OCULAR HYPERAEMIA [None]
  - PHOTOPHOBIA [None]
  - EYE IRRITATION [None]
